FAERS Safety Report 9377054 (Version 1)
Quarter: 2013Q3

REPORT INFORMATION
  Report Type: Spontaneous
  Country: US (occurrence: US)
  Receive Date: 20130701
  Receipt Date: 20130701
  Transmission Date: 20140515
  Serious: Yes (Other)
  Sender: FDA-Public Use
  Company Number: US-GENZYME-FABR-1003387

PATIENT
  Sex: Male

DRUGS (17)
  1. FABRAZYME [Suspect]
     Indication: FABRY^S DISEASE
     Dosage: 90 MG, Q2W
     Route: 042
  2. FABRAZYME [Suspect]
     Dosage: 45 MG, Q2W
     Route: 042
  3. FABRAZYME [Suspect]
     Dosage: 90 MG, Q2W
     Route: 042
  4. ASA [Concomitant]
     Indication: TRANSIENT ISCHAEMIC ATTACK
     Dosage: UNK
     Route: 065
  5. LIPITOR [Concomitant]
     Indication: CEREBROVASCULAR ACCIDENT
     Dosage: 20 MG, UNK
     Route: 065
  6. CANDESARTAN [Concomitant]
     Indication: PROTEINURIA
     Dosage: UNK
     Route: 065
  7. ADVAIR [Concomitant]
     Indication: PRODUCT USED FOR UNKNOWN INDICATION
     Dosage: UNK (100-50 MCG/ DOSE)
     Route: 065
  8. ASPIRIN [Concomitant]
     Indication: TRANSIENT ISCHAEMIC ATTACK
     Dosage: UNK
     Route: 048
  9. COENZYME Q10 [Concomitant]
     Indication: PRODUCT USED FOR UNKNOWN INDICATION
     Dosage: 10 MG, QD
     Route: 048
  10. BENADRYL [Concomitant]
     Indication: PREMEDICATION
     Dosage: 50 MG, QD
     Route: 048
  11. ADVIL [Concomitant]
     Indication: PREMEDICATION
     Dosage: 600 MG, QD
     Route: 048
  12. NASONEX [Concomitant]
     Indication: PRODUCT USED FOR UNKNOWN INDICATION
     Dosage: 50 MCGX 2 SPRAYS, QD
     Route: 045
  13. SINGULAIR [Concomitant]
     Indication: BRONCHIAL HYPERREACTIVITY
     Dosage: 10 MG, QD
     Route: 048
  14. MULTIVITAMIN AND MINERAL [Concomitant]
     Indication: PRODUCT USED FOR UNKNOWN INDICATION
     Dosage: UNK
     Route: 048
  15. BENICAR [Concomitant]
     Indication: PRODUCT USED FOR UNKNOWN INDICATION
     Dosage: 20 MG, QD
     Route: 065
  16. POTASSIUM [Concomitant]
     Indication: PRODUCT USED FOR UNKNOWN INDICATION
     Dosage: UNK
     Route: 048
  17. OLMESARTAN [Concomitant]
     Indication: PROPHYLAXIS
     Dosage: UNK
     Route: 065

REACTIONS (3)
  - Deafness [Unknown]
  - Disease progression [Unknown]
  - Scleral haemorrhage [Unknown]
